FAERS Safety Report 23538012 (Version 2)
Quarter: 2024Q2

REPORT INFORMATION
  Report Type: Report from Study
  Country: BG (occurrence: BG)
  Receive Date: 20240219
  Receipt Date: 20240422
  Transmission Date: 20240716
  Serious: No
  Sender: FDA-Public Use
  Company Number: BG-CELLTRION INC.-2024BG003681

PATIENT

DRUGS (6)
  1. BEVACIZUMAB [Suspect]
     Active Substance: BEVACIZUMAB
     Indication: Non-small cell lung cancer
     Dosage: 500 MG
     Route: 065
     Dates: start: 20210212
  2. ATEZOLIZUMAB [Suspect]
     Active Substance: ATEZOLIZUMAB
     Indication: Non-small cell lung cancer
     Dosage: 1200 MG
     Route: 042
     Dates: start: 20210212
  3. CARBOPLATIN [Suspect]
     Active Substance: CARBOPLATIN
     Indication: Non-small cell lung cancer
     Dosage: UNK
     Route: 065
     Dates: start: 20210212
  4. PACLITAXEL [Suspect]
     Active Substance: PACLITAXEL
     Indication: Non-small cell lung cancer
     Dosage: 200 MG
     Route: 065
     Dates: start: 20210212
  5. CHLOFADON [Concomitant]
     Dosage: UNK, 1 DAY
     Dates: start: 20210617, end: 20210617
  6. DEXOFEN [DEXKETOPROFEN TROMETAMOL] [Concomitant]
     Dosage: UNK
     Dates: start: 20221109

REACTIONS (1)
  - Pruritus [Not Recovered/Not Resolved]

NARRATIVE: CASE EVENT DATE: 20210705
